FAERS Safety Report 5514031-1 (Version None)
Quarter: 2007Q4

REPORT INFORMATION
  Report Type: 
  Country: None (occurrence: None)
  Receive Date: 20071106
  Receipt Date: 20070312
  Transmission Date: 20080405
  Serious: Yes (Other)
  Sender: FDA-Public Use
  Company Number: US-JNJFOC-20070106545

PATIENT
  Sex: Male
  Weight: 102.9665 kg

DRUGS (1)
  1. MOTRIN [Suspect]
     Indication: JOINT INJURY
     Dosage: 2400 MG
     Dates: end: 20070101

REACTIONS (6)
  - ANGIOEDEMA [None]
  - HEADACHE [None]
  - MUSCULOSKELETAL STIFFNESS [None]
  - TINNITUS [None]
  - TREMOR [None]
  - URTICARIA [None]
